FAERS Safety Report 8777343 (Version 2)
Quarter: 2012Q4

REPORT INFORMATION
  Report Type: 
  Country: JP (occurrence: JP)
  Receive Date: 20120911
  Receipt Date: 20121129
  Transmission Date: 20130627
  Serious: Yes (Hospitalization, Other)
  Sender: FDA-Public Use
  Company Number: JP-PFIZER INC-2012220279

PATIENT
  Age: 74 Year
  Sex: Male

DRUGS (8)
  1. SUTENT [Suspect]
     Indication: RENAL CELL CARCINOMA
     Dosage: 50 mg, 1x/day
     Route: 048
     Dates: start: 20120611, end: 20120624
  2. SUTENT [Suspect]
     Dosage: 25 mg, 1x/day
     Route: 048
     Dates: start: 20120723, end: 20120805
  3. SUTENT [Suspect]
     Dosage: 25 mg, 1x/day
     Route: 048
     Dates: start: 20120810, end: 20120824
  4. AMLODIN [Concomitant]
     Indication: HYPERTENSION
     Dosage: 5 mg, 1x/day
     Route: 048
     Dates: start: 20120611, end: 20120918
  5. ALLOPURINOL [Concomitant]
     Indication: HYPERURICAEMIA
     Dosage: 200 mg, 1x/day
     Route: 048
  6. ATELEC [Concomitant]
     Indication: HYPERTENSION
     Dosage: 10 mg, 1x/day
     Route: 048
  7. CRESTOR [Concomitant]
     Indication: HYPERLIPIDAEMIA
     Dosage: 2.5 mg, 1x/day
     Route: 048
  8. WARFARIN [Concomitant]
     Indication: ATRIAL SEPTAL DEFECT
     Dosage: 3.0 mg, 1x/day
     Route: 048

REACTIONS (1)
  - Lumbar vertebral fracture [Unknown]
